FAERS Safety Report 7428380-3 (Version None)
Quarter: 2011Q2

REPORT INFORMATION
  Report Type: 
  Country: None (occurrence: None)
  Receive Date: 20110412
  Receipt Date: 20110401
  Transmission Date: 20111010
  Serious: Yes (Hospitalization)
  Sender: FDA-Public Use
  Company Number: WAES 1103USA01264

PATIENT
  Age: 35 Year
  Sex: Male

DRUGS (6)
  1. ISENTRESS [Suspect]
     Indication: HIV INFECTION
     Dosage: 800 MG, DAILY, PO
     Route: 048
     Dates: start: 20091229
  2. ZERIT [Concomitant]
  3. INTELENCE [Suspect]
     Indication: HIV INFECTION
     Dosage: 400 MG, DAILY, PO
     Route: 048
     Dates: start: 20091229
  4. TAB EPZICOM (ABACAVIR SULFATE (+) LAMIVUDINE [Suspect]
     Indication: HIV INFECTION
     Dosage: 1 TAB DAILY, PO
     Route: 048
     Dates: start: 20091229
  5. VIRACEPT [Concomitant]
  6. EPIVIR [Concomitant]

REACTIONS (1)
  - HAEMORRHAGIC DIATHESIS [None]
